FAERS Safety Report 16343949 (Version 2)
Quarter: 2019Q2

REPORT INFORMATION
  Report Type: Spontaneous
  Country: JP (occurrence: JP)
  Receive Date: 20190522
  Receipt Date: 20190529
  Transmission Date: 20190711
  Serious: Yes (Hospitalization)
  Sender: FDA-Public Use
  Company Number: JP-INCYTE CORPORATION-2019IN004943

PATIENT

DRUGS (1)
  1. JAKAVI [Suspect]
     Active Substance: RUXOLITINIB
     Indication: MYELOFIBROSIS
     Dosage: UNK
     Route: 048
     Dates: end: 2018

REACTIONS (4)
  - Second primary malignancy [Unknown]
  - Erythema nodosum [Unknown]
  - Skin induration [Unknown]
  - Kaposi^s sarcoma [Unknown]
